FAERS Safety Report 7102662-7 (Version None)
Quarter: 2010Q4

REPORT INFORMATION
  Report Type: 
  Country: None (occurrence: None)
  Receive Date: 20101115
  Receipt Date: 20070612
  Transmission Date: 20110411
  Serious: Yes (Death, Life-Threatening, Hospitalization)
  Sender: FDA-Public Use
  Company Number: PHRM2007FR01613

PATIENT
  Age: 60 Year
  Sex: Male

DRUGS (21)
  1. GLEEVEC [Suspect]
     Dosage: 400 MG DAILY
     Route: 048
     Dates: start: 20061227, end: 20070103
  2. GLEEVEC [Suspect]
     Dosage: 300 MG DAILY
     Route: 048
     Dates: start: 20070104, end: 20070106
  3. GLEEVEC [Suspect]
     Dosage: 200 MG PER DAY
     Route: 048
     Dates: start: 20070117, end: 20070126
  4. GLEEVEC [Suspect]
     Route: 048
     Dates: start: 20070127, end: 20070130
  5. LOVENOX [Concomitant]
     Route: 065
  6. TIENAM [Concomitant]
     Dosage: 500 MG, TID
     Route: 065
  7. CIFLOX [Concomitant]
     Dosage: 500 MG, BID
     Route: 065
  8. NOVORAPID [Concomitant]
     Route: 065
  9. NOVOMIX [Concomitant]
     Dosage: 28 IU IN THE MORNING, 10 IU IN THE EVENING
     Route: 065
  10. CORTANCYL [Concomitant]
     Dosage: 60 MG IN THE MORNING
     Route: 065
  11. ZELITREX                                /DEN/ [Concomitant]
     Dosage: 500 MG, TID
     Route: 065
  12. MOTILIUM ^JANSSEN^ [Concomitant]
     Dosage: 3 DF PER DAY
     Route: 065
  13. ACUPAN [Concomitant]
     Dosage: EVERY 4 HOURS
     Route: 065
  14. DURAGESIC-100 [Concomitant]
     Dosage: 50 UG/72 H
     Route: 065
  15. LYRICA [Concomitant]
     Dosage: 150 MG PER DAY
     Route: 065
  16. LAROXYL [Concomitant]
     Dosage: 35 DROPS PER DAY
     Route: 048
  17. RIVOTRIL [Concomitant]
     Dosage: 5 DROPS PER DAY
     Route: 048
  18. MORPHINE [Concomitant]
     Route: 065
     Dates: start: 20070202
  19. SCOPOLAMINE HYDROCHLORIDE [Concomitant]
     Route: 065
     Dates: start: 20070202
  20. XANAX [Concomitant]
     Route: 065
     Dates: start: 20070202
  21. HYPNOVEL [Concomitant]
     Route: 065
     Dates: start: 20070202

REACTIONS (3)
  - BLOOD LACTATE DEHYDROGENASE INCREASED [None]
  - LIPASE INCREASED [None]
  - PANCREATITIS [None]
